FAERS Safety Report 15569606 (Version 2)
Quarter: 2018Q4

REPORT INFORMATION
  Report Type: Spontaneous
  Country: SI (occurrence: SI)
  Receive Date: 20181031
  Receipt Date: 20181109
  Transmission Date: 20190205
  Serious: Yes (Other)
  Sender: FDA-Public Use
  Company Number: SI-BAYER-2018-195384

PATIENT
  Age: 80 Year
  Sex: Male

DRUGS (5)
  1. LACIDIPINE [Concomitant]
     Active Substance: LACIDIPINE
  2. RAMIPRIL. [Concomitant]
     Active Substance: RAMIPRIL
  3. ASPIRIN PROTECT 100 MG [Suspect]
     Active Substance: ASPIRIN
     Indication: PERIPHERAL ARTERIAL OCCLUSIVE DISEASE
     Dosage: UNK
  4. REPAGLINIDE. [Concomitant]
     Active Substance: REPAGLINIDE
  5. STATIN [Concomitant]
     Active Substance: UNSPECIFIED INGREDIENT

REACTIONS (4)
  - Peripheral arterial occlusive disease [None]
  - Renal artery arteriosclerosis [None]
  - Carotid arteriosclerosis [None]
  - Arteriosclerosis coronary artery [None]
